FAERS Safety Report 5320685-5 (Version None)
Quarter: 2007Q2

REPORT INFORMATION
  Report Type: 
  Country: None (occurrence: None)
  Receive Date: 20070509
  Receipt Date: 20070501
  Transmission Date: 20071010
  Serious: Yes (Hospitalization)
  Sender: FDA-Public Use
  Company Number: US-AMGEN-US218579

PATIENT
  Sex: Female
  Weight: 64 kg

DRUGS (12)
  1. ARANESP [Suspect]
     Indication: ANAEMIA OF MALIGNANT DISEASE
     Route: 058
     Dates: start: 20070312, end: 20070406
  2. DIFLUCAN [Concomitant]
  3. DECADRON [Concomitant]
  4. EMEND [Concomitant]
  5. ZOFRAN [Concomitant]
     Dates: start: 20070319, end: 20070409
  6. ROXICET [Concomitant]
     Dates: start: 20070201
  7. TETRACYCLINE [Concomitant]
  8. HYDROCORTISONE [Concomitant]
  9. NYSTATIN [Concomitant]
  10. BENADRYL [Concomitant]
  11. CISPLATIN [Concomitant]
     Dates: start: 20070209, end: 20070312
  12. ZANTAC [Concomitant]
     Dates: start: 20070201

REACTIONS (7)
  - DEEP VEIN THROMBOSIS [None]
  - DYSPNOEA [None]
  - HYPOTENSION [None]
  - PANIC ATTACK [None]
  - PULMONARY EMBOLISM [None]
  - PULMONARY HYPERTENSION [None]
  - TACHYCARDIA [None]
